FAERS Safety Report 5268912-7 (Version None)
Quarter: 2007Q1

REPORT INFORMATION
  Report Type: 
  Country: None (occurrence: None)
  Receive Date: 20070313
  Receipt Date: 20070228
  Transmission Date: 20070707
  Serious: Yes (Death)
  Sender: FDA-Public Use
  Company Number: GXKR2007GB02135

PATIENT
  Age: 79 Year
  Sex: Male

DRUGS (8)
  1. FLUOXETINE [Suspect]
     Indication: DEPRESSION
     Dosage: 30 MG, QW, ORAL
     Route: 048
     Dates: start: 20060808
  2. METHOTREXATE [Suspect]
     Indication: SERONEGATIVE ARTHRITIS
     Dosage: 5 MG
     Dates: start: 20000710
  3. CO-DYDRAMOL (DIHYDROCODEINE BITARTRATE, PARACETAMOL) [Concomitant]
  4. DIGOXIN [Concomitant]
  5. FOLIC ACID [Concomitant]
  6. PRAZOSIN GITS [Concomitant]
  7. SULFASALAZINE [Concomitant]
  8. WARFARIN SODIUM [Concomitant]

REACTIONS (3)
  - PNEUMONIA [None]
  - PNEUMONITIS [None]
  - PULMONARY FIBROSIS [None]
